FAERS Safety Report 4304694-0 (Version None)
Quarter: 2004Q1

REPORT INFORMATION
  Report Type: 
  Country: None (occurrence: None)
  Receive Date: 20040226
  Receipt Date: 20031118
  Transmission Date: 20041129
  Serious: No
  Sender: FDA-Public Use
  Company Number: US-GLAXOSMITHKLINE-A0440205A

PATIENT
  Sex: Female

DRUGS (14)
  1. WELLBUTRIN [Suspect]
     Indication: DEPRESSION
     Dosage: 450MG PER DAY
     Route: 048
     Dates: start: 20031113
  2. SYNTHROID [Concomitant]
  3. LIPITOR [Concomitant]
  4. PROZAC [Concomitant]
  5. GLUCOTROL [Concomitant]
  6. ZESTRIL [Concomitant]
  7. PROVIGIL [Concomitant]
  8. DILANTIN [Concomitant]
  9. CENTRUM [Concomitant]
  10. VITAMIN C [Concomitant]
     Route: 065
  11. TUMS EX [Concomitant]
  12. PRILOSEC [Concomitant]
  13. VITAMIN E [Concomitant]
     Route: 065
  14. VITAMIN B COMPLEX CAP [Concomitant]
     Route: 065

REACTIONS (1)
  - FATIGUE [None]
